FAERS Safety Report 4314408-6 (Version None)
Quarter: 2004Q1

REPORT INFORMATION
  Report Type: 
  Country: None (occurrence: None)
  Receive Date: 20040309
  Receipt Date: 20030731
  Transmission Date: 20041129
  Serious: Yes (Hospitalization)
  Sender: FDA-Public Use
  Company Number: IT-GLAXOSMITHKLINE-B0305804A

PATIENT
  Age: 51 Year
  Sex: Female
  Weight: 69 kg

DRUGS (8)
  1. TOPOTECAN [Suspect]
     Indication: OVARIAN CANCER
     Route: 042
     Dates: start: 20030721, end: 20030723
  2. PACLITAXEL [Suspect]
     Indication: OVARIAN CANCER
     Route: 042
     Dates: start: 20030723, end: 20030723
  3. CARBOPLATIN [Suspect]
     Indication: OVARIAN CANCER
     Route: 042
     Dates: start: 20030723, end: 20030723
  4. GRANULOKINE [Concomitant]
     Indication: NEUTROPENIA
     Dates: start: 20030729, end: 20030731
  5. PIPRAM [Concomitant]
     Indication: CYSTITIS
     Dates: start: 20030726, end: 20030731
  6. BUSCOPAN [Concomitant]
     Indication: PAIN
     Dates: start: 20030726, end: 20030726
  7. LEVOXACIN [Concomitant]
     Indication: PROPHYLAXIS
     Dates: start: 20030731
  8. LOPERAMIDE HCL [Concomitant]
     Indication: DIARRHOEA
     Dates: start: 20030729, end: 20030731

REACTIONS (4)
  - ABDOMINAL PAIN [None]
  - HAEMATURIA [None]
  - NEUTROPENIA [None]
  - THROMBOCYTOPENIA [None]
